FAERS Safety Report 4839028-6 (Version None)
Quarter: 2005Q4

REPORT INFORMATION
  Report Type: 
  Country: None (occurrence: None)
  Receive Date: 20051129
  Receipt Date: 20051122
  Transmission Date: 20060501
  Serious: Yes (Other)
  Sender: FDA-Public Use
  Company Number: US-BRISTOL-MYERS SQUIBB COMPANY-13191002

PATIENT
  Age: 19 Year
  Sex: Female
  Weight: 61 kg

DRUGS (5)
  1. TEQUIN [Suspect]
     Indication: URINARY TRACT INFECTION
     Dates: start: 20051021
  2. TOPAMAX [Concomitant]
  3. FOLIC ACID [Concomitant]
  4. KLONOPIN [Concomitant]
  5. VESICARE [Concomitant]

REACTIONS (1)
  - GRAND MAL CONVULSION [None]
